FAERS Safety Report 10217552 (Version 1)
Quarter: 2014Q2

REPORT INFORMATION
  Report Type: Spontaneous
  Country: MX (occurrence: MX)
  Receive Date: 20140604
  Receipt Date: 20140604
  Transmission Date: 20141212
  Serious: Yes (Death, Other)
  Sender: FDA-Public Use
  Company Number: MX-UCBSA-123254

PATIENT
  Age: 74 Year
  Sex: Male
  Weight: 100 kg

DRUGS (3)
  1. NUBRENZA [Suspect]
     Indication: PARKINSON^S DISEASE
     Dosage: ROUTE: DERMIC
     Route: 062
     Dates: start: 20130814, end: 20140324
  2. LEVODOPA [Concomitant]
     Indication: PARKINSON^S DISEASE
     Route: 048
     Dates: start: 20060101, end: 20140325
  3. CLOPSINE [Concomitant]
     Indication: PARKINSON^S DISEASE
     Dosage: 25 MG, ONCE DAILY (QD)
     Route: 048
     Dates: end: 20140325

REACTIONS (1)
  - Myocardial infarction [Fatal]
